FAERS Safety Report 8502385-3 (Version None)
Quarter: 2012Q3

REPORT INFORMATION
  Report Type: 
  Country: None (occurrence: None)
  Receive Date: 20120711
  Receipt Date: 20120704
  Transmission Date: 20120928
  Serious: Yes (Death, Other)
  Sender: FDA-Public Use
  Company Number: US-JNJFOC-20120704065

PATIENT
  Age: 69 Year
  Sex: Female

DRUGS (1)
  1. TAPENTADOL HYDROCHLORIDE [Suspect]
     Indication: PRODUCT USED FOR UNKNOWN INDICATION
     Route: 065

REACTIONS (3)
  - BRADYCARDIA [None]
  - CARDIO-RESPIRATORY ARREST [None]
  - HYPOTENSION [None]
